FAERS Safety Report 10203922 (Version 1)
Quarter: 2014Q2

REPORT INFORMATION
  Report Type: Spontaneous
  Country: AU (occurrence: AU)
  Receive Date: 20140529
  Receipt Date: 20140529
  Transmission Date: 20141212
  Serious: Yes (Hospitalization)
  Sender: FDA-Public Use
  Company Number: PHHY2014AU060389

PATIENT
  Age: 66 Year
  Sex: Male
  Weight: 80 kg

DRUGS (5)
  1. METOPROLOL [Suspect]
     Dosage: 5 G, UNK
  2. AMLODIPINE [Suspect]
     Dosage: 150 MG, UNK
  3. OLMESARTAN [Suspect]
     Dosage: 600 MG, UNK
  4. MOXONIDINE [Suspect]
     Dosage: 12 MG, UNK
  5. DABIGATRAN [Suspect]
     Dosage: 9 G, UNK

REACTIONS (12)
  - Overdose [Unknown]
  - Fall [Unknown]
  - Suicide attempt [Unknown]
  - Renal impairment [Recovering/Resolving]
  - Blood creatinine increased [Recovering/Resolving]
  - Coagulopathy [Recovering/Resolving]
  - Activated partial thromboplastin time prolonged [Recovering/Resolving]
  - Thrombin time abnormal [Recovering/Resolving]
  - Haemodynamic instability [Unknown]
  - Somnolence [Unknown]
  - Hypotension [Unknown]
  - Bradycardia [Unknown]
